FAERS Safety Report 7107646-0 (Version None)
Quarter: 2010Q4

REPORT INFORMATION
  Report Type: 
  Country: None (occurrence: None)
  Receive Date: 20101117
  Receipt Date: 20101109
  Transmission Date: 20110411
  Serious: Yes (Hospitalization)
  Sender: FDA-Public Use
  Company Number: DE-TEVA-254524GER

PATIENT
  Age: 14 Year
  Sex: Female
  Weight: 40 kg

DRUGS (1)
  1. ALPRAZOLAM [Suspect]
     Indication: SUICIDE ATTEMPT
     Route: 048
     Dates: start: 20100821

REACTIONS (3)
  - BLOOD GLUCOSE INCREASED [None]
  - COMA SCALE ABNORMAL [None]
  - INTENTIONAL OVERDOSE [None]
